FAERS Safety Report 8439539 (Version 8)
Quarter: 2012Q4

REPORT INFORMATION
  Report Type: Report from Study
  Country: JP (occurrence: JP)
  Receive Date: 20120304
  Receipt Date: 20120926
  Transmission Date: 20130627
  Serious: Yes (Hospitalization, Other)
  Sender: FDA-Public Use
  Company Number: JP-VERTEX PHARMACEUTICAL INC.-AE-2012-002822

PATIENT
  Age: 59 Year
  Sex: Male

DRUGS (14)
  1. VX-950 [Suspect]
     Indication: HEPATITIS C
     Dosage: 2250 mg, qd
     Route: 048
     Dates: start: 20120214, end: 20120217
  2. VX-950 [Suspect]
     Dosage: 1000 mg, qd
     Route: 048
     Dates: start: 20120228, end: 20120301
  3. VX-950 [Suspect]
     Dosage: 1500 mg, qd
     Route: 048
     Dates: start: 20120302, end: 20120416
  4. VX-950 [Suspect]
     Dosage: 2000 mg, qd
     Route: 048
     Dates: start: 20120417
  5. PEGINTRON                          /01543001/ [Suspect]
     Indication: HEPATITIS C
     Dosage: 1.5 UNK, UNK
     Route: 058
     Dates: start: 20120214, end: 20120217
  6. PEGINTRON                          /01543001/ [Suspect]
     Dosage: 1.5 UNK, UNK
     Route: 058
     Dates: start: 20120221
  7. REBETOL [Suspect]
     Indication: HEPATITIS C
     Dosage: 800 mg, qd
     Route: 048
     Dates: start: 20120214, end: 20120217
  8. REBETOL [Suspect]
     Dosage: 800 mg, qd
     Route: 048
     Dates: start: 20120221, end: 20120305
  9. REBETOL [Suspect]
     Dosage: 400 mg, qd
     Route: 048
     Dates: start: 20120306, end: 20120430
  10. REBETOL [Suspect]
     Dosage: 600 mg, qd
     Route: 048
     Dates: start: 20120501, end: 20120604
  11. REBETOL [Suspect]
     Dosage: 800 mg, qd
     Route: 048
     Dates: start: 20120605
  12. ALLOPURINOL [Concomitant]
     Dosage: 200 mg, qd
     Route: 048
     Dates: end: 20120508
  13. JANUVIA [Concomitant]
     Dosage: 50 mg, qd
     Route: 048
  14. CELESTAMINE                        /00252801/ [Concomitant]
     Dosage: 3 DF, UNK
     Route: 048
     Dates: end: 20120403

REACTIONS (4)
  - Renal failure acute [Recovered/Resolved]
  - Hyperuricaemia [Recovered/Resolved]
  - Rash [None]
  - Pruritus [None]
